FAERS Safety Report 7179482-0 (Version None)
Quarter: 2010Q4

REPORT INFORMATION
  Report Type: 
  Country: None (occurrence: None)
  Receive Date: 20101209
  Receipt Date: 20101125
  Transmission Date: 20110411
  Serious: Yes (Hospitalization)
  Sender: FDA-Public Use
  Company Number: PHHY2010FR80865

PATIENT
  Age: 24 Year
  Sex: Male

DRUGS (3)
  1. SIRDALUD (TIZANIDINE HYDROCHLORIDE) TABLET, 4 MG [Suspect]
     Dosage: 1 DF, QD, ORAL
     Route: 048
     Dates: start: 20101020, end: 20101110
  2. METHADONE HCL [Concomitant]
  3. ANTI-ASTHMATICS (NO INGREDIENTS/SUBSTANCES) [Concomitant]

REACTIONS (3)
  - ASTHMA [None]
  - CARDIO-RESPIRATORY ARREST [None]
  - THROMBOCYTOPENIA [None]
